FAERS Safety Report 10262930 (Version 4)
Quarter: 2015Q1

REPORT INFORMATION
  Report Type: Spontaneous
  Country: US (occurrence: US)
  Receive Date: 20140626
  Receipt Date: 20150114
  Transmission Date: 20150720
  Serious: Yes (Congenital Anomaly, Other)
  Sender: FDA-Public Use
  Company Number: US-ELI_LILLY_AND_COMPANY-US201406008849

PATIENT

DRUGS (22)
  1. DDI [Concomitant]
     Active Substance: DIDANOSINE
  2. LORTAB [Concomitant]
     Active Substance: ACETAMINOPHEN\HYDROCODONE BITARTRATE
  3. FLUOXETINE HYDROCHLORIDE. [Suspect]
     Active Substance: FLUOXETINE HYDROCHLORIDE
     Indication: DEPRESSION
     Dosage: 40 MG, QD
     Route: 048
  4. FLUOXETINE HYDROCHLORIDE. [Suspect]
     Active Substance: FLUOXETINE HYDROCHLORIDE
     Indication: DEPRESSION
     Dosage: 40 MG, QD
     Route: 048
  5. NELFINAVIR [Concomitant]
     Active Substance: NELFINAVIR
  6. COLACE [Concomitant]
     Active Substance: DOCUSATE SODIUM
  7. NELFINAVIR [Concomitant]
     Active Substance: NELFINAVIR
  8. VIDEX EC [Concomitant]
     Active Substance: DIDANOSINE
  9. LORTAB [Concomitant]
     Active Substance: ACETAMINOPHEN\HYDROCODONE BITARTRATE
  10. TRUVADA [Concomitant]
     Active Substance: EMTRICITABINE\TENOFOVIR DISOPROXIL FUMARATE
  11. COMBIVIR [Concomitant]
     Active Substance: LAMIVUDINE\ZIDOVUDINE
  12. DDI [Concomitant]
     Active Substance: DIDANOSINE
  13. VIDEX EC [Concomitant]
     Active Substance: DIDANOSINE
  14. IRON [Concomitant]
     Active Substance: IRON
  15. PNV [Concomitant]
  16. SUSTIVA [Concomitant]
     Active Substance: EFAVIRENZ
  17. PNV [Concomitant]
  18. TRUVADA [Concomitant]
     Active Substance: EMTRICITABINE\TENOFOVIR DISOPROXIL FUMARATE
  19. COLACE [Concomitant]
     Active Substance: DOCUSATE SODIUM
  20. COMBIVIR [Concomitant]
     Active Substance: LAMIVUDINE\ZIDOVUDINE
  21. SUSTIVA [Concomitant]
     Active Substance: EFAVIRENZ
  22. IRON [Concomitant]
     Active Substance: IRON

REACTIONS (3)
  - Cleft lip [Unknown]
  - Congenital hand malformation [Unknown]
  - Foetal exposure during pregnancy [Recovered/Resolved]
